FAERS Safety Report 10756630 (Version 2)
Quarter: 2015Q1

REPORT INFORMATION
  Report Type: Report from Study
  Country: TR (occurrence: TR)
  Receive Date: 20150202
  Receipt Date: 20150310
  Transmission Date: 20150721
  Serious: Yes (Other)
  Sender: FDA-Public Use
  Company Number: PHHY2014TR145988

PATIENT
  Age: 27 Year
  Sex: Female
  Weight: 58 kg

DRUGS (3)
  1. EXJADE [Suspect]
     Active Substance: DEFERASIROX
     Indication: THALASSAEMIA BETA
     Dosage: 1250 MG, DAILY
     Route: 048
     Dates: start: 2009
  2. EXJADE [Suspect]
     Active Substance: DEFERASIROX
     Dosage: 500 MG, DAILY
     Route: 048
     Dates: start: 20150211
  3. EXJADE [Suspect]
     Active Substance: DEFERASIROX
     Dosage: 1250 MG, DAILY
     Route: 048
     Dates: end: 20150122

REACTIONS (4)
  - Liver injury [Unknown]
  - Alanine aminotransferase increased [Recovered/Resolved]
  - Aspartate aminotransferase increased [Recovered/Resolved]
  - Serum ferritin decreased [Unknown]

NARRATIVE: CASE EVENT DATE: 20141021
